FAERS Safety Report 8933252 (Version 1)
Quarter: 2012Q4

REPORT INFORMATION
  Report Type: 
  Country: AR (occurrence: AR)
  Receive Date: 20121129
  Receipt Date: 20121129
  Transmission Date: 20130627
  Serious: Yes (Hospitalization, Other)
  Sender: FDA-Public Use
  Company Number: PHHY2012AR108861

PATIENT
  Sex: Female

DRUGS (1)
  1. GILENYA [Suspect]
     Indication: MULTIPLE SCLEROSIS
     Dosage: 1 DF, daily
     Route: 048
     Dates: start: 201203, end: 201210

REACTIONS (9)
  - Multiple sclerosis relapse [Recovering/Resolving]
  - VIIth nerve paralysis [Recovering/Resolving]
  - Facial pain [Recovering/Resolving]
  - Pain in extremity [Recovering/Resolving]
  - Hypokinesia [Recovering/Resolving]
  - Intervertebral disc protrusion [Recovering/Resolving]
  - Contusion [Recovering/Resolving]
  - Oedema peripheral [Recovering/Resolving]
  - Dyspnoea [Recovering/Resolving]
